FAERS Safety Report 10993327 (Version 1)
Quarter: 2015Q2

REPORT INFORMATION
  Report Type: Spontaneous
  Country: US (occurrence: US)
  Receive Date: 20150407
  Receipt Date: 20150407
  Transmission Date: 20150821
  Serious: No
  Sender: FDA-Public Use
  Company Number: US-009507513-1503USA015179

PATIENT
  Sex: Female

DRUGS (1)
  1. NEXPLANON [Suspect]
     Active Substance: ETONOGESTREL
     Indication: OVARIAN CYST
     Dosage: 1 ROD, UNK
     Route: 059
     Dates: start: 201406

REACTIONS (3)
  - Metrorrhagia [Recovered/Resolved]
  - Drug administration error [Unknown]
  - Haemorrhage [Unknown]

NARRATIVE: CASE EVENT DATE: 2014
